FAERS Safety Report 10521970 (Version 2)
Quarter: 2014Q4

REPORT INFORMATION
  Report Type: Spontaneous
  Country: US (occurrence: None)
  Receive Date: 20141014
  Receipt Date: 20141120
  Transmission Date: 20150528
  Serious: Yes (Other)
  Sender: FDA-Public Use
  Company Number: 2014-US-012828

PATIENT
  Age: 27 Year
  Sex: Female

DRUGS (1)
  1. XYREM [Suspect]
     Active Substance: SODIUM OXYBATE
     Indication: NARCOLEPSY
     Route: 048
     Dates: start: 201102, end: 2011

REACTIONS (3)
  - Intracranial pressure increased [None]
  - Sleep apnoea syndrome [None]
  - Seasonal allergy [None]

NARRATIVE: CASE EVENT DATE: 201206
